FAERS Safety Report 8769316 (Version 3)
Quarter: 2013Q1

REPORT INFORMATION
  Report Type: Report from Study
  Country: RU (occurrence: RU)
  Receive Date: 20120911
  Receipt Date: 20130219
  Transmission Date: 20140127
  Serious: Yes (Congenital Anomaly)
  Sender: FDA-Public Use
  Company Number: RU-MYLANLABS-2012S1018021

PATIENT
  Sex: Female
  Weight: 2.5 kg

DRUGS (3)
  1. DARUNAVIR [Suspect]
     Route: 064
  2. ZIDOVUDINE [Suspect]
     Route: 064
  3. RITONAVIR [Suspect]
     Route: 064

REACTIONS (2)
  - Premature baby [Recovered/Resolved]
  - Exposure during pregnancy [Recovered/Resolved]
